FAERS Safety Report 11991820 (Version 1)
Quarter: 2016Q1

REPORT INFORMATION
  Report Type: Spontaneous
  Country: US (occurrence: US)
  Receive Date: 20160203
  Receipt Date: 20160203
  Transmission Date: 20160526
  Serious: No
  Sender: FDA-Public Use
  Company Number: US-JNJFOC-20151205263

PATIENT
  Age: 5 Year
  Sex: Female

DRUGS (12)
  1. CETIRIZINE HYDROCHLORIDE. [Suspect]
     Active Substance: CETIRIZINE HYDROCHLORIDE
     Indication: VULVOVAGINAL ERYTHEMA
     Dosage: TWICE, DAILY
     Route: 065
  2. DIPHENHYDRAMINE. [Suspect]
     Active Substance: DIPHENHYDRAMINE
     Indication: VULVOVAGINAL ERYTHEMA
     Route: 065
  3. PREDNISONE. [Concomitant]
     Active Substance: PREDNISONE
     Indication: VULVOVAGINAL PAIN
     Route: 065
  4. DIPHENHYDRAMINE. [Suspect]
     Active Substance: DIPHENHYDRAMINE
     Indication: VULVOVAGINAL PAIN
     Route: 065
  5. MONTELUKAST [Concomitant]
     Active Substance: MONTELUKAST SODIUM
     Indication: VULVOVAGINAL PAIN
     Dosage: DAILY
     Route: 065
  6. RANITIDINE [Concomitant]
     Active Substance: RANITIDINE\RANITIDINE HYDROCHLORIDE
     Indication: VULVOVAGINAL PAIN
     Dosage: TWICE, DAILY
     Route: 065
  7. CETIRIZINE HYDROCHLORIDE. [Suspect]
     Active Substance: CETIRIZINE HYDROCHLORIDE
     Indication: VULVOVAGINAL PAIN
     Route: 065
  8. RANITIDINE [Concomitant]
     Active Substance: RANITIDINE\RANITIDINE HYDROCHLORIDE
     Indication: VULVOVAGINAL ERYTHEMA
     Dosage: TWICE, DAILY
     Route: 065
  9. CETIRIZINE HYDROCHLORIDE. [Suspect]
     Active Substance: CETIRIZINE HYDROCHLORIDE
     Indication: VULVOVAGINAL ERYTHEMA
     Route: 065
  10. PREDNISONE. [Concomitant]
     Active Substance: PREDNISONE
     Indication: VULVOVAGINAL ERYTHEMA
     Route: 065
  11. CETIRIZINE HYDROCHLORIDE. [Suspect]
     Active Substance: CETIRIZINE HYDROCHLORIDE
     Indication: VULVOVAGINAL PAIN
     Dosage: TWICE, DAILY
     Route: 065
  12. MONTELUKAST [Concomitant]
     Active Substance: MONTELUKAST SODIUM
     Indication: VULVOVAGINAL ERYTHEMA
     Dosage: DAILY
     Route: 065

REACTIONS (4)
  - Product use issue [Unknown]
  - Off label use [Unknown]
  - Drug ineffective for unapproved indication [Unknown]
  - Therapeutic response unexpected [Unknown]
